FAERS Safety Report 8255224-2 (Version None)
Quarter: 2012Q1

REPORT INFORMATION
  Report Type: 
  Country: None (occurrence: None)
  Receive Date: 20120330
  Receipt Date: 20120321
  Transmission Date: 20120608
  Serious: Yes (Hospitalization, Other)
  Sender: FDA-Public Use
  Company Number: ADR-2009-6325

PATIENT
  Sex: Male

DRUGS (3)
  1. LIORESAL [Suspect]
     Indication: MUSCLE SPASTICITY
     Dosage: 100 MCG, DAILY, INTRATH
     Route: 037
  2. LIORESAL [Suspect]
     Indication: SPINAL CORD DISORDER
     Dosage: 100 MCG, DAILY, INTRATH
     Route: 037
  3. LIORESAL [Suspect]
     Indication: SPINAL CORD INJURY
     Dosage: 100 MCG, DAILY, INTRATH
     Route: 037

REACTIONS (3)
  - SCAR [None]
  - WITHDRAWAL SYNDROME [None]
  - UNDERDOSE [None]
